FAERS Safety Report 6265838-7 (Version None)
Quarter: 2009Q3

REPORT INFORMATION
  Report Type: 
  Country: None (occurrence: None)
  Receive Date: 20090713
  Receipt Date: 20090702
  Transmission Date: 20100115
  Serious: Yes (Life-Threatening, Hospitalization, Other)
  Sender: FDA-Public Use
  Company Number: B0582249A

PATIENT
  Sex: Female

DRUGS (2)
  1. LAPATINIB [Suspect]
     Dosage: 1250MG PER DAY
     Route: 065
     Dates: start: 20090501, end: 20090601
  2. CHEMOTHERAPY [Concomitant]

REACTIONS (4)
  - HEPATOMEGALY [None]
  - JAUNDICE [None]
  - RASH [None]
  - SPLENOMEGALY [None]
